FAERS Safety Report 8811133 (Version 1)
Quarter: 2012Q4

REPORT INFORMATION
  Report Type: Spontaneous
  Country: TR (occurrence: None)
  Receive Date: 20120921
  Receipt Date: 20120921
  Transmission Date: 20130627
  Serious: Yes (Life-Threatening)
  Sender: FDA-Public Use
  Company Number: DSA_59742_2012

PATIENT
  Age: 66 Year
  Sex: Male
  Weight: 68 kg

DRUGS (4)
  1. FLUOROURACIL [Suspect]
     Indication: GASTRIC CANCER
     Dosage: 750 mg/m2,  every cycle Intravenous (not otherwise specified)
     Route: 042
     Dates: start: 20091126
  2. DOCETAXEL [Suspect]
     Route: 041
     Dates: start: 20091126
  3. CISPLATIN [Suspect]
     Route: 042
     Dates: start: 20091126
  4. NAVOBAN [Concomitant]

REACTIONS (6)
  - Nausea [None]
  - Pyrexia [None]
  - Febrile neutropenia [None]
  - Red blood cell count decreased [None]
  - Haemoglobin decreased [None]
  - Haematocrit decreased [None]
